FAERS Safety Report 7740577-1 (Version None)
Quarter: 2011Q3

REPORT INFORMATION
  Report Type: 
  Country: None (occurrence: None)
  Receive Date: 20110909
  Receipt Date: 20110906
  Transmission Date: 20111222
  Serious: Yes (Death, Hospitalization)
  Sender: FDA-Public Use
  Company Number: KR-PFIZER INC-2011204830

PATIENT
  Age: 69 Year
  Sex: Male
  Weight: 51.54 kg

DRUGS (7)
  1. TS-1 [Suspect]
     Indication: NON-SMALL CELL LUNG CANCER
     Dosage: 80 MG/M2/DAY, D1-D14, EVERY 3 WEEKS
     Route: 048
     Dates: start: 20110818, end: 20110830
  2. CISPLATIN [Suspect]
     Indication: NON-SMALL CELL LUNG CANCER
     Dosage: 60 MG/M2/DAY, D1, EVERY 3 WEEKS
     Route: 042
     Dates: start: 20110818, end: 20110818
  3. CAMPTOSAR [Suspect]
     Indication: NON-SMALL CELL LUNG CANCER
     Dosage: 120 MG/M2, D1, EVERY 3 WEEKS
     Route: 042
     Dates: start: 20110818, end: 20110818
  4. ATACAND HCT [Concomitant]
     Indication: HYPERTENSION
     Dosage: UNK
     Route: 048
     Dates: start: 20080101, end: 20110830
  5. ASPIRIN [Concomitant]
     Indication: PROPHYLAXIS
     Dosage: UNK
     Route: 048
     Dates: start: 20080101, end: 20110830
  6. VASOTROL [Concomitant]
     Indication: HYPERTENSION
     Dosage: UNK
     Route: 048
     Dates: start: 20080101, end: 20110830
  7. VARENICLINE TARTRATE [Concomitant]
     Indication: SMOKING CESSATION THERAPY
     Dosage: UNK
     Route: 048
     Dates: start: 20110825, end: 20110830

REACTIONS (1)
  - FEBRILE NEUTROPENIA [None]
